FAERS Safety Report 7829482-X (Version None)
Quarter: 2011Q4

REPORT INFORMATION
  Report Type: 
  Country: None (occurrence: None)
  Receive Date: 20111020
  Receipt Date: 20111013
  Transmission Date: 20120403
  Serious: Yes (Death)
  Sender: FDA-Public Use
  Company Number: US-GILEAD-2011-0043789

PATIENT

DRUGS (3)
  1. LETAIRIS [Suspect]
     Indication: SCLERODERMA
  2. LETAIRIS [Suspect]
     Indication: MIXED CONNECTIVE TISSUE DISEASE
  3. LETAIRIS [Suspect]
     Indication: PULMONARY HYPERTENSION
     Dosage: 10 MG, UNK
     Route: 048

REACTIONS (6)
  - MULTI-ORGAN FAILURE [None]
  - BRADYCARDIA [None]
  - SCLERODERMA [None]
  - RIGHT VENTRICULAR FAILURE [None]
  - MIXED CONNECTIVE TISSUE DISEASE [None]
  - PULMONARY HYPERTENSION [None]
